FAERS Safety Report 4688365-7 (Version None)
Quarter: 2005Q2

REPORT INFORMATION
  Report Type: 
  Country: None (occurrence: None)
  Receive Date: 20050609
  Receipt Date: 20050527
  Transmission Date: 20051028
  Serious: Yes (Life-Threatening, Hospitalization, Other)
  Sender: FDA-Public Use
  Company Number: BEWYE644104MAY05

PATIENT
  Age: 29 Year
  Sex: Male

DRUGS (2)
  1. EFFEXOR XR [Suspect]
     Indication: SOCIAL PHOBIA
     Dosage: SEE IMAGE
     Route: 048
     Dates: start: 20050318, end: 20050101
  2. EFFEXOR XR [Suspect]
     Indication: SOCIAL PHOBIA
     Dosage: SEE IMAGE
     Route: 048
     Dates: end: 20050317

REACTIONS (2)
  - CONVULSION [None]
  - SYNCOPE [None]
